FAERS Safety Report 15546269 (Version 1)
Quarter: 2018Q4

REPORT INFORMATION
  Report Type: Report from Study
  Country: US (occurrence: US)
  Receive Date: 20181024
  Receipt Date: 20181024
  Transmission Date: 20190205
  Serious: No
  Sender: FDA-Public Use
  Company Number: US-AMGEN-USASL2018138396

PATIENT
  Age: 81 Year
  Sex: Male

DRUGS (1)
  1. REPATHA [Suspect]
     Active Substance: EVOLOCUMAB
     Indication: HYPERCHOLESTEROLAEMIA
     Dosage: 420 MG, QMO
     Route: 058
     Dates: start: 20180920

REACTIONS (4)
  - Chills [Recovered/Resolved]
  - Hyperhidrosis [Recovered/Resolved]
  - Influenza like illness [Recovered/Resolved]
  - Bowel movement irregularity [Recovered/Resolved]

NARRATIVE: CASE EVENT DATE: 2018
